FAERS Safety Report 12631539 (Version 2)
Quarter: 2016Q3

REPORT INFORMATION
  Report Type: Spontaneous
  Country: US (occurrence: US)
  Receive Date: 20160808
  Receipt Date: 20160808
  Transmission Date: 20161109
  Serious: No
  Sender: FDA-Public Use
  Company Number: US-BEH-2015054527

PATIENT
  Sex: Female
  Weight: 65 kg

DRUGS (14)
  1. ACETAMINOPHEN. [Concomitant]
     Active Substance: ACETAMINOPHEN
  2. LIDOCAINE/PRILOCAINE [Concomitant]
     Active Substance: LIDOCAINE\PRILOCAINE
  3. LEVAQUIN [Concomitant]
     Active Substance: LEVOFLOXACIN
  4. CELEXA [Concomitant]
     Active Substance: CITALOPRAM HYDROBROMIDE
  5. TOPAMAX [Concomitant]
     Active Substance: TOPIRAMATE
  6. ORTHO NOVO [Concomitant]
  7. DIPHENHYDRAMINE. [Concomitant]
     Active Substance: DIPHENHYDRAMINE
  8. MIDRIN [Concomitant]
     Active Substance: ACETAMINOPHEN\DICHLORALPHENAZONE\ISOMETHEPTENE
  9. PROBIOTIC [Concomitant]
     Active Substance: PROBIOTICS NOS
  10. ALBUTEROL. [Concomitant]
     Active Substance: ALBUTEROL
  11. ZANTAC [Concomitant]
     Active Substance: RANITIDINE HYDROCHLORIDE
  12. PREDNISONE. [Concomitant]
     Active Substance: PREDNISONE
  13. HIZENTRA [Suspect]
     Active Substance: HUMAN IMMUNOGLOBULIN G
     Indication: IMMUNODEFICIENCY COMMON VARIABLE
     Route: 058
  14. TESSALON [Concomitant]
     Active Substance: BENZONATATE

REACTIONS (2)
  - Administration site inflammation [Unknown]
  - Administration site warmth [Unknown]
